FAERS Safety Report 23241586 (Version 1)
Quarter: 2023Q4

REPORT INFORMATION
  Report Type: Spontaneous
  Country: FR (occurrence: FR)
  Receive Date: 20231129
  Receipt Date: 20231129
  Transmission Date: 20240110
  Serious: Yes (Other)
  Sender: FDA-Public Use
  Company Number: None

PATIENT
  Age: 39 Year
  Sex: Female

DRUGS (3)
  1. CLINDAMYCIN [Suspect]
     Active Substance: CLINDAMYCIN
     Indication: Prophylaxis
     Dosage: 600 MILLIGRAM, 1 TOTAL
     Route: 048
     Dates: start: 20231009, end: 20231009
  2. EPINEPHRINE [Suspect]
     Active Substance: EPINEPHRINE
     Indication: Local anaesthesia
     Dosage: UNK
     Route: 065
     Dates: start: 20231009, end: 20231009
  3. ARTICAINE [Suspect]
     Active Substance: ARTICAINE
     Indication: Local anaesthesia
     Dosage: UNK
     Route: 065
     Dates: start: 20231009, end: 20231009

REACTIONS (1)
  - Hemiparesis [Recovered/Resolved]

NARRATIVE: CASE EVENT DATE: 20231009
